FAERS Safety Report 16469781 (Version 1)
Quarter: 2019Q2

REPORT INFORMATION
  Report Type: Spontaneous
  Country: US (occurrence: US)
  Receive Date: 20190514
  Receipt Date: 20190514
  Transmission Date: 20190711
  Serious: Yes (Other)
  Sender: FDA-Public Use
  Company Number: None

PATIENT
  Age: 61 Year
  Sex: Female
  Weight: 54.43 kg

DRUGS (2)
  1. MULTI-VIT [Concomitant]
     Active Substance: VITAMINS
  2. TERBINAFINE. [Suspect]
     Active Substance: TERBINAFINE
     Indication: FUNGAL INFECTION
     Dosage: ?          QUANTITY:1 DF DOSAGE FORM;?
     Route: 048
     Dates: start: 20181201

REACTIONS (12)
  - Neutrophil count abnormal [None]
  - Immune system disorder [None]
  - Hypersensitivity [None]
  - Laboratory test abnormal [None]
  - Mean cell volume abnormal [None]
  - Pruritus [None]
  - Dysgeusia [None]
  - Renal impairment [None]
  - Urticaria [None]
  - White blood cell disorder [None]
  - Ageusia [None]
  - Blood glucose increased [None]

NARRATIVE: CASE EVENT DATE: 20190112
